FAERS Safety Report 7033235-2 (Version None)
Quarter: 2010Q4

REPORT INFORMATION
  Report Type: 
  Country: None (occurrence: None)
  Receive Date: 20101007
  Receipt Date: 20100929
  Transmission Date: 20110411
  Serious: Yes (Hospitalization)
  Sender: FDA-Public Use
  Company Number: GB-B.I. PHARMACEUTICALS,INC./RIDGEFIELD-2010-BP-11215YA

PATIENT
  Age: 60 Year
  Sex: Male
  Weight: 54.2 kg

DRUGS (2)
  1. TAMSULOSIN HCL [Suspect]
     Indication: URINARY RETENTION
     Route: 048
     Dates: start: 20100629, end: 20100720
  2. INSULIN (INSULIN) [Concomitant]
     Dates: start: 20091101, end: 20100501

REACTIONS (3)
  - HYPERGLYCAEMIA [None]
  - HYPEROSMOLAR STATE [None]
  - WEIGHT DECREASED [None]
